FAERS Safety Report 8388555-6 (Version None)
Quarter: 2012Q2

REPORT INFORMATION
  Report Type: 
  Country: None (occurrence: None)
  Receive Date: 20120525
  Receipt Date: 20120522
  Transmission Date: 20120825
  Serious: Yes (Life-Threatening, Hospitalization, Other)
  Sender: FDA-Public Use
  Company Number: US-AMGEN-USASP2012032055

PATIENT
  Age: 52 Year
  Sex: Male

DRUGS (2)
  1. ENBREL [Suspect]
     Indication: RHEUMATOID ARTHRITIS
     Dosage: 50 MG, QWK
     Dates: start: 20090903
  2. TREXALL [Concomitant]
     Dosage: UNKNOWN MGS 10 PILLS
     Dates: start: 20090901

REACTIONS (6)
  - RHEUMATOID ARTHRITIS [None]
  - PHARYNGEAL OEDEMA [None]
  - VOCAL CORD POLYP [None]
  - BACK PAIN [None]
  - LARYNGEAL CANCER [None]
  - DYSPHONIA [None]
